FAERS Safety Report 19124055 (Version 1)
Quarter: 2021Q2

REPORT INFORMATION
  Report Type: Spontaneous
  Country: IR (occurrence: IR)
  Receive Date: 20210413
  Receipt Date: 20210413
  Transmission Date: 20210717
  Serious: Yes (Death, Other)
  Sender: FDA-Public Use
  Company Number: IR-SUN PHARMACEUTICAL INDUSTRIES LTD-2021R1-288958

PATIENT
  Age: 14 Year
  Sex: Male

DRUGS (9)
  1. GLYCOPHOSE [Concomitant]
     Indication: COVID-19
     Dosage: UNK
     Route: 065
  2. HYDROXYCHLOROQUINE [Suspect]
     Active Substance: HYDROXYCHLOROQUINE
     Indication: COVID-19
     Dosage: 200 MILLIGRAM, BID
     Route: 065
  3. VITAMIN E [Concomitant]
     Active Substance: .ALPHA.-TOCOPHEROL
     Indication: COVID-19
     Dosage: 200 MILLIGRAM, DAILY
     Route: 048
  4. SPIRONOLACTONE. [Concomitant]
     Active Substance: SPIRONOLACTONE
     Indication: COVID-19
     Dosage: 25 MILLIGRAM , BD
     Route: 048
  5. CEFOTAXIME [Concomitant]
     Active Substance: CEFOTAXIME SODIUM
     Indication: COVID-19
     Dosage: UNK
     Route: 042
  6. ALBUMIN [Concomitant]
     Active Substance: ALBUMIN HUMAN
     Indication: COVID-19
     Dosage: UNK
     Route: 065
  7. CALCIUM GLUCONATE. [Concomitant]
     Active Substance: CALCIUM GLUCONATE
     Indication: COVID-19
     Dosage: UNK
     Route: 065
  8. URSODEOXYCHOLIC ACID [Concomitant]
     Active Substance: URSODIOL
     Indication: COVID-19
     Dosage: 250 MILLIGRAM , TDS
     Route: 065
  9. VITAMIN K [Concomitant]
     Active Substance: PHYTONADIONE
     Indication: COVID-19
     Dosage: 10 MILLIGRAM, DAILY
     Route: 042

REACTIONS (3)
  - Encephalopathy [Unknown]
  - Condition aggravated [Unknown]
  - Drug ineffective [Fatal]
